FAERS Safety Report 5772966-9 (Version None)
Quarter: 2008Q2

REPORT INFORMATION
  Report Type: 
  Country: None (occurrence: None)
  Receive Date: 20080613
  Receipt Date: 20080602
  Transmission Date: 20081010
  Serious: Yes (Other)
  Sender: FDA-Public Use
  Company Number: US-PFIZER INC-2008047383

PATIENT
  Sex: Female
  Weight: 55 kg

DRUGS (1)
  1. CHANTIX [Suspect]
     Indication: SMOKING CESSATION THERAPY
     Dosage: TEXT:1MG BID EVERY DAY TDD:2MG
     Dates: start: 20080301, end: 20080601

REACTIONS (5)
  - ABNORMAL DREAMS [None]
  - AMNESIA [None]
  - CONFUSIONAL STATE [None]
  - DEPRESSION [None]
  - SOMNAMBULISM [None]
